FAERS Safety Report 21536532 (Version 3)
Quarter: 2023Q1

REPORT INFORMATION
  Report Type: Report from Study
  Country: US (occurrence: US)
  Receive Date: 20221101
  Receipt Date: 20230320
  Transmission Date: 20230417
  Serious: Yes (Other)
  Sender: FDA-Public Use
  Company Number: US-ABBVIE-4148962

PATIENT
  Sex: Female

DRUGS (5)
  1. HUMIRA [Suspect]
     Active Substance: ADALIMUMAB
     Indication: Rheumatoid arthritis
     Dosage: CITRATE FREE
     Route: 058
     Dates: start: 20210104
  2. HUMIRA [Suspect]
     Active Substance: ADALIMUMAB
     Dosage: CITRATE FREE, 40 MG
     Route: 058
  3. Pfizer/BioNTech Covid-19 Vaccination [Concomitant]
     Indication: COVID-19 immunisation
     Dosage: FIRST DOSE- FREQUENCY ONE IN ONCE
     Route: 030
     Dates: start: 20210207, end: 20210207
  4. Pfizer/BioNTech Covid-19 Vaccination [Concomitant]
     Indication: COVID-19 immunisation
     Dosage: SECOND DOSE- FREQUENCY ONE IN ONCE
     Route: 030
     Dates: start: 20210331, end: 20210331
  5. Pfizer/BioNTech Covid-19 Vaccination [Concomitant]
     Indication: COVID-19 immunisation
     Dosage: BOOSTER DOSE, THIRD DOSE- FREQUENCY ONE IN ONCE
     Route: 030
     Dates: start: 20220906, end: 20220906

REACTIONS (7)
  - Foot operation [Unknown]
  - Nerve compression [Unknown]
  - Fall [Unknown]
  - Pain in extremity [Recovered/Resolved]
  - Arthropathy [Unknown]
  - Pain [Recovering/Resolving]
  - Pain in extremity [Not Recovered/Not Resolved]

NARRATIVE: CASE EVENT DATE: 20210101
